FAERS Safety Report 23292622 (Version 9)
Quarter: 2025Q2

REPORT INFORMATION
  Report Type: Spontaneous
  Country: US (occurrence: US)
  Receive Date: 20231213
  Receipt Date: 20250409
  Transmission Date: 20250716
  Serious: Yes (Hospitalization, Other)
  Sender: SANOFI AVENTIS
  Company Number: US-SA-SAC20231211000657

PATIENT
  Age: 41 Year
  Sex: Female

DRUGS (3)
  1. DUPIXENT [Suspect]
     Active Substance: DUPILUMAB
     Indication: Asthma
     Dosage: 300 MG, QOW
     Route: 058
     Dates: start: 20231215, end: 202409
  2. DUPIXENT [Suspect]
     Active Substance: DUPILUMAB
     Route: 058
     Dates: start: 20231201, end: 20231201
  3. DUPIXENT [Suspect]
     Active Substance: DUPILUMAB
     Indication: Asthma
     Route: 058

REACTIONS (16)
  - Pulmonary oedema [Unknown]
  - Dyspnoea [Recovering/Resolving]
  - Cough [Unknown]
  - Bronchospasm [Recovering/Resolving]
  - Rhinovirus infection [Unknown]
  - Dysarthria [Recovering/Resolving]
  - Coronavirus test positive [Unknown]
  - Eosinophil count decreased [Unknown]
  - Viral infection [Unknown]
  - Chest discomfort [Unknown]
  - Drug effect less than expected [Unknown]
  - Hospitalisation [Unknown]
  - Asthma [Unknown]
  - Muscle spasms [Unknown]
  - Injection site pain [Recovered/Resolved]
  - Drug ineffective [Unknown]

NARRATIVE: CASE EVENT DATE: 20230101
